FAERS Safety Report 7215004-3 (Version None)
Quarter: 2011Q1

REPORT INFORMATION
  Report Type: 
  Country: None (occurrence: None)
  Receive Date: 20110107
  Receipt Date: 20100706
  Transmission Date: 20110831
  Serious: No
  Sender: FDA-Public Use
  Company Number: A0868665A

PATIENT
  Sex: Female

DRUGS (11)
  1. LOVAZA [Suspect]
     Dosage: 2CAP TWICE PER DAY
     Route: 048
     Dates: start: 20090901
  2. ZYRTEC [Concomitant]
  3. SYNTHROID [Concomitant]
  4. MINOCYCLINE HCL [Concomitant]
  5. TRICOR [Concomitant]
  6. SINGULAIR [Concomitant]
  7. ASPIRIN [Concomitant]
  8. WELLBUTRIN [Concomitant]
  9. CRESTOR [Concomitant]
  10. VICODIN [Concomitant]
  11. AZOR (AMLODIPINE BESILATE + OLMESARTAN MEDOXOMIL) [Concomitant]

REACTIONS (2)
  - DYSPEPSIA [None]
  - SENSATION OF FOREIGN BODY [None]
